FAERS Safety Report 6788781-3 (Version None)
Quarter: 2010Q2

REPORT INFORMATION
  Report Type: 
  Country: None (occurrence: None)
  Receive Date: 20100623
  Receipt Date: 20080708
  Transmission Date: 20101027
  Serious: No
  Sender: FDA-Public Use
  Company Number: US-PFIZER INC-2008041467

PATIENT
  Sex: Female
  Weight: 95.454 kg

DRUGS (6)
  1. GENOTROPIN [Suspect]
     Indication: BLOOD GROWTH HORMONE DECREASED
     Dates: start: 20080430
  2. GENOTROPIN [Suspect]
     Indication: PITUITARY TUMOUR
  3. HERBAL NOS/MINERALS NOS [Concomitant]
  4. SYNTHROID [Concomitant]
     Indication: THYROID DISORDER
  5. LEXAPRO [Concomitant]
     Indication: DEPRESSION
  6. TRAZODONE HYDROCHLORIDE [Concomitant]
     Indication: SLEEP DISORDER

REACTIONS (3)
  - MALAISE [None]
  - NAUSEA [None]
  - TREMOR [None]
